FAERS Safety Report 13619243 (Version 1)
Quarter: 2017Q2

REPORT INFORMATION
  Report Type: Spontaneous
  Country: US (occurrence: US)
  Receive Date: 20170606
  Receipt Date: 20170606
  Transmission Date: 20170830
  Serious: Yes (Disabling)
  Sender: FDA-Public Use
  Company Number: None

PATIENT
  Age: 67 Year
  Sex: Female
  Weight: 67.05 kg

DRUGS (13)
  1. PROBIOTIC [Concomitant]
     Active Substance: PROBIOTICS NOS
  2. TRANSDERMAL ESTROGEN HORMONE PATCH [Concomitant]
  3. QVAR [Concomitant]
     Active Substance: BECLOMETHASONE DIPROPIONATE
  4. VITAMIN D3 [Concomitant]
     Active Substance: CHOLECALCIFEROL
  5. LEVOFLOXACIN. [Suspect]
     Active Substance: LEVOFLOXACIN
     Indication: EAR PAIN
     Route: 048
     Dates: start: 20160106, end: 20160114
  6. ALLEGRA [Concomitant]
     Active Substance: FEXOFENADINE HYDROCHLORIDE
  7. NASALCROM [Concomitant]
     Active Substance: CROMOLYN SODIUM
  8. MAGNESIUM [Concomitant]
     Active Substance: MAGNESIUM
  9. VITAMIN B12 [Concomitant]
     Active Substance: CYANOCOBALAMIN
  10. FLAX OIL [Concomitant]
  11. COMPOUNDED T3/T4 THYROID MEDICATION [Concomitant]
  12. PROAIR HFF [Concomitant]
  13. Q10 [Concomitant]

REACTIONS (5)
  - Tendon rupture [None]
  - Hypoaesthesia [None]
  - Paraesthesia [None]
  - Joint range of motion decreased [None]
  - Respiratory disorder [None]

NARRATIVE: CASE EVENT DATE: 20160114
